FAERS Safety Report 4967356-2 (Version None)
Quarter: 2006Q2

REPORT INFORMATION
  Report Type: 
  Country: None (occurrence: None)
  Receive Date: 20060410
  Receipt Date: 20060329
  Transmission Date: 20061013
  Serious: Yes (Congenital Anomaly)
  Sender: FDA-Public Use
  Company Number: BR-JNJFOC-20060307192

PATIENT
  Sex: Male

DRUGS (16)
  1. TOPAMAX [Suspect]
  2. PROMETHAZINE [Concomitant]
  3. FOLIC ACID [Concomitant]
  4. POLYVITAMIN [Concomitant]
  5. CALCIUM GLUCONATE [Concomitant]
  6. CELESTONE TAB [Concomitant]
  7. NIMESULIDE [Concomitant]
  8. NORFLOXACIN [Concomitant]
  9. DIPYRONE INJ [Concomitant]
  10. DORFLEX [Concomitant]
  11. DORFLEX [Concomitant]
  12. DORFLEX [Concomitant]
  13. AZITHROMYCIN [Concomitant]
  14. VALDECOXIB [Concomitant]
  15. DIPYRONE INJ [Concomitant]
     Route: 064
  16. ADIPHENINE [Concomitant]

REACTIONS (2)
  - PREMATURE BABY [None]
  - XYY SYNDROME [None]
